FAERS Safety Report 19939411 (Version 2)
Quarter: 2023Q2

REPORT INFORMATION
  Report Type: Spontaneous
  Country: US (occurrence: US)
  Receive Date: 20211011
  Receipt Date: 20230504
  Transmission Date: 20230722
  Serious: Yes (Other)
  Sender: FDA-Public Use
  Company Number: US-PFIZER INC-202101336568

PATIENT
  Age: 66 Year
  Sex: Male
  Weight: 83.91 kg

DRUGS (1)
  1. XELJANZ [Suspect]
     Active Substance: TOFACITINIB CITRATE
     Dosage: 5 MG

REACTIONS (5)
  - Malignant melanoma [Unknown]
  - Cardiac operation [Unknown]
  - Spinal operation [Unknown]
  - Bradykinesia [Unknown]
  - Pain [Unknown]

NARRATIVE: CASE EVENT DATE: 20230101
